FAERS Safety Report 4915058-0 (Version None)
Quarter: 2006Q1

REPORT INFORMATION
  Report Type: 
  Country: None (occurrence: None)
  Receive Date: 20060217
  Receipt Date: 20060208
  Transmission Date: 20060701
  Serious: Yes (Hospitalization, Other)
  Sender: FDA-Public Use
  Company Number: GB-JNJFOC-20050804906

PATIENT
  Sex: Female
  Weight: 52 kg

DRUGS (10)
  1. REMICADE [Suspect]
     Indication: RHEUMATOID ARTHRITIS
     Route: 042
  2. BENDROFLUAZIDE [Concomitant]
     Route: 065
  3. SIMVASTATIN [Concomitant]
     Route: 065
  4. ACETAMINOPHEN [Concomitant]
     Route: 065
  5. DISODIUM ETIDRONATE [Concomitant]
     Route: 065
  6. ADCAL [Concomitant]
     Route: 065
  7. AMLODIPINE [Concomitant]
  8. ATENOLOL [Concomitant]
  9. ASPIRIN [Concomitant]
  10. OMEPRAZOLE [Concomitant]

REACTIONS (3)
  - BACTERIA STOOL IDENTIFIED [None]
  - GASTRITIS [None]
  - GASTROENTERITIS [None]
